FAERS Safety Report 4975791-1 (Version None)
Quarter: 2006Q2

REPORT INFORMATION
  Report Type: 
  Country: None (occurrence: None)
  Receive Date: 20060411
  Receipt Date: 20060327
  Transmission Date: 20061013
  Serious: Yes (Hospitalization)
  Sender: FDA-Public Use
  Company Number: 223836

PATIENT
  Age: 61 Year
  Sex: Female

DRUGS (4)
  1. AVASTIN [Suspect]
     Indication: COLORECTAL CANCER
     Dosage: 600 MG, Q3W, INTRAVENOUS
     Route: 042
     Dates: start: 20060320
  2. CAPECITABINE (CAPECITABINE) [Suspect]
     Indication: COLORECTAL CANCER
     Dosage: 2000 MG, BID, ORAL
     Route: 048
     Dates: start: 20060320
  3. OXALIPLATIN (OXALIPLATIN) [Suspect]
     Indication: COLORECTAL CANCER
     Dosage: 245 MG, Q3W, INTRAVENOUS
     Route: 042
     Dates: start: 20060320
  4. ATENOL (ATENOLOL) [Concomitant]

REACTIONS (1)
  - PYREXIA [None]
